FAERS Safety Report 16877031 (Version 4)
Quarter: 2020Q2

REPORT INFORMATION
  Report Type: Spontaneous
  Country: GB (occurrence: GB)
  Receive Date: 20191002
  Receipt Date: 20200624
  Transmission Date: 20200713
  Serious: Yes (Disabling, Other)
  Sender: FDA-Public Use
  Company Number: GB-ASTRAZENECA-2019SF34246

PATIENT
  Age: 25476 Day
  Sex: Male

DRUGS (6)
  1. RAMIPRIL. [Concomitant]
     Active Substance: RAMIPRIL
  2. ATORVASTATIN [Concomitant]
     Active Substance: ATORVASTATIN
  3. METFORMIN [Concomitant]
     Active Substance: METFORMIN HYDROCHLORIDE
  4. FORXIGA [Suspect]
     Active Substance: DAPAGLIFLOZIN
     Route: 048
  5. FORXIGA [Suspect]
     Active Substance: DAPAGLIFLOZIN
     Route: 048
     Dates: start: 20190904, end: 20190911
  6. GLIMEPRIDE [Concomitant]
     Active Substance: GLIMEPIRIDE

REACTIONS (14)
  - Asthenia [Unknown]
  - Diarrhoea [Recovered/Resolved]
  - Dry skin [Not Recovered/Not Resolved]
  - Malaise [Unknown]
  - Pruritus [Not Recovered/Not Resolved]
  - Skin mass [Unknown]
  - Ageusia [Unknown]
  - Dysgeusia [Recovered/Resolved]
  - Feeling hot [Unknown]
  - Bedridden [Unknown]
  - Breath odour [Recovered/Resolved]
  - Pruritus genital [Recovering/Resolving]
  - Parosmia [Unknown]
  - Somnolence [Unknown]

NARRATIVE: CASE EVENT DATE: 20190908
